FAERS Safety Report 12978546 (Version 2)
Quarter: 2017Q1

REPORT INFORMATION
  Report Type: Spontaneous
  Country: US (occurrence: US)
  Receive Date: 20161128
  Receipt Date: 20170103
  Transmission Date: 20170428
  Serious: No
  Sender: FDA-Public Use
  Company Number: US-PFIZER INC-2016546912

PATIENT
  Age: 54 Year
  Sex: Female
  Weight: 59 kg

DRUGS (3)
  1. TRAMADOL. [Concomitant]
     Active Substance: TRAMADOL
     Indication: MUSCLE RELAXANT THERAPY
     Dosage: 50 MG, UNK
     Route: 048
     Dates: start: 2011
  2. CARISOPRODOL. [Concomitant]
     Active Substance: CARISOPRODOL
     Indication: PAIN
     Dosage: 350 MG, 2 TO 3 TIMES A DAY
  3. LYRICA [Suspect]
     Active Substance: PREGABALIN
     Indication: NEURALGIA
     Dosage: 100 MG, 2 OR 3X/DAY
     Route: 048
     Dates: start: 2005

REACTIONS (5)
  - Paraesthesia [Unknown]
  - Spinal pain [Unknown]
  - Intentional product misuse [Unknown]
  - Fall [Unknown]
  - Pain in extremity [Unknown]
